FAERS Safety Report 15673525 (Version 1)
Quarter: 2018Q4

REPORT INFORMATION
  Report Type: Spontaneous
  Country: US (occurrence: US)
  Receive Date: 20181129
  Receipt Date: 20181129
  Transmission Date: 20190205
  Serious: No
  Sender: FDA-Public Use
  Company Number: US-PFIZER INC-2018476062

PATIENT
  Age: 61 Year
  Sex: Female

DRUGS (2)
  1. SULFUR. [Suspect]
     Active Substance: SULFUR
     Dosage: UNK
  2. DOXEPIN HCL [Suspect]
     Active Substance: DOXEPIN HYDROCHLORIDE
     Dosage: UNK

REACTIONS (3)
  - Joint vibration [Unknown]
  - Drug hypersensitivity [Unknown]
  - Feeling jittery [Unknown]
